FAERS Safety Report 9169211 (Version 1)
Quarter: 2013Q1

REPORT INFORMATION
  Report Type: Spontaneous
  Country: FR (occurrence: FR)
  Receive Date: 20130318
  Receipt Date: 20130318
  Transmission Date: 20140127
  Serious: Yes (Hospitalization)
  Sender: FDA-Public Use
  Company Number: FR-ROCHE-719209

PATIENT
  Age: 86 Year
  Sex: Female

DRUGS (3)
  1. ROCEPHINE [Suspect]
     Indication: PRODUCT USED FOR UNKNOWN INDICATION
     Dosage: FREQUENCY: DAILY
     Route: 065
     Dates: start: 20100712, end: 20100713
  2. OFLOCET [Concomitant]
     Dosage: FORM: INFUSION
     Route: 065
     Dates: start: 20100712, end: 20100713
  3. OFLOCET [Concomitant]
     Route: 065

REACTIONS (1)
  - Acute generalised exanthematous pustulosis [Recovered/Resolved]
